FAERS Safety Report 11263818 (Version 1)
Quarter: 2015Q3

REPORT INFORMATION
  Report Type: Spontaneous
  Country: US (occurrence: US)
  Receive Date: 20150713
  Receipt Date: 20150713
  Transmission Date: 20151125
  Serious: No
  Sender: FDA-Public Use
  Company Number: US-JNJFOC-20150617256

PATIENT
  Sex: Male

DRUGS (1)
  1. INVOKAMET [Suspect]
     Active Substance: CANAGLIFLOZIN\METFORMIN HYDROCHLORIDE
     Indication: DIABETES MELLITUS
     Dosage: DOSE: 50 MG/ 500 MG
     Route: 048
     Dates: start: 201506

REACTIONS (9)
  - Blood glucose decreased [Unknown]
  - Asthenia [Unknown]
  - Diarrhoea [Unknown]
  - Flatulence [Unknown]
  - Pollakiuria [Unknown]
  - Weight decreased [Unknown]
  - Hyperhidrosis [Unknown]
  - Somnolence [Unknown]
  - Eating disorder [Unknown]

NARRATIVE: CASE EVENT DATE: 201506
